FAERS Safety Report 8849945 (Version 2)
Quarter: 2012Q4

REPORT INFORMATION
  Report Type: 
  Country: US (occurrence: US)
  Receive Date: 20121019
  Receipt Date: 20121204
  Transmission Date: 20130627
  Serious: Yes (Other)
  Sender: FDA-Public Use
  Company Number: US-ABBOTT-12P-163-0994814-00

PATIENT
  Sex: Female
  Weight: 79 kg

DRUGS (3)
  1. LUPRON DEPOT [Suspect]
     Indication: ENDOMETRIOSIS
     Route: 030
     Dates: start: 201209
  2. AYGESTIN [Suspect]
     Indication: DRUG THERAPY
     Dates: start: 201209
  3. EPINEPHRINE [Suspect]
     Indication: PRODUCT USED FOR UNKNOWN INDICATION

REACTIONS (3)
  - Tongue oedema [Recovered/Resolved]
  - Dysphagia [Recovered/Resolved]
  - Aphasia [Recovered/Resolved]
